FAERS Safety Report 9886878 (Version 1)
Quarter: 2014Q1

REPORT INFORMATION
  Report Type: Spontaneous
  Country: IT (occurrence: IT)
  Receive Date: 20140210
  Receipt Date: 20140210
  Transmission Date: 20141002
  Serious: Yes (Life-Threatening)
  Sender: FDA-Public Use
  Company Number: IT-ROCHE-1346464

PATIENT
  Age: 39 Year
  Sex: Female

DRUGS (3)
  1. ROACTEMRA [Suspect]
     Indication: RHEUMATOID ARTHRITIS
     Route: 042
     Dates: start: 20130305, end: 20130610
  2. AZATHIOPRINE [Concomitant]
     Route: 065
  3. MEDROL [Concomitant]
     Route: 065

REACTIONS (1)
  - Syncope [Recovered/Resolved]
